FAERS Safety Report 5389956-0 (Version None)
Quarter: 2007Q3

REPORT INFORMATION
  Report Type: 
  Country: None (occurrence: None)
  Receive Date: 20070716
  Receipt Date: 20070716
  Transmission Date: 20080115
  Serious: Yes (Other)
  Sender: FDA-Public Use
  Company Number: None

PATIENT
  Age: 47 Year
  Sex: Female
  Weight: 52.1637 kg

DRUGS (1)
  1. TRANDOLAPRIL [Suspect]
     Indication: HYPERTENSION
     Dosage: 1 TABLET ONE DAILY PO
     Route: 048
     Dates: start: 20070709, end: 20070710

REACTIONS (2)
  - PALPITATIONS [None]
  - THERAPEUTIC RESPONSE UNEXPECTED WITH DRUG SUBSTITUTION [None]
